FAERS Safety Report 22526870 (Version 1)
Quarter: 2023Q2

REPORT INFORMATION
  Report Type: Spontaneous
  Country: JP (occurrence: JP)
  Receive Date: 20230606
  Receipt Date: 20230606
  Transmission Date: 20230721
  Serious: Yes (Other)
  Sender: FDA-Public Use
  Company Number: JP-PFIZER INC-PV202300098512

PATIENT
  Age: 82 Year
  Sex: Female

DRUGS (1)
  1. AZULFIDINE EN-TABS [Suspect]
     Active Substance: SULFASALAZINE

REACTIONS (3)
  - Blood test abnormal [Unknown]
  - Prothrombin level increased [Unknown]
  - Coagulation time prolonged [Unknown]
